FAERS Safety Report 4511308-3 (Version None)
Quarter: 2004Q4

REPORT INFORMATION
  Report Type: 
  Country: None (occurrence: None)
  Receive Date: 20041129
  Receipt Date: 20041124
  Transmission Date: 20050328
  Serious: Yes (Life-Threatening, Hospitalization)
  Sender: FDA-Public Use
  Company Number: GB-BRISTOL-MYERS SQUIBB COMPANY-12775029

PATIENT
  Age: 60 Year
  Sex: Female
  Weight: 112 kg

DRUGS (8)
  1. PACLITAXEL [Suspect]
     Indication: BREAST CANCER
     Dates: start: 20041028, end: 20041028
  2. CYCLOPHOSPHAMIDE [Suspect]
     Indication: BREAST CANCER
     Dates: start: 20041007, end: 20041007
  3. EPIRUBICIN [Suspect]
     Indication: BREAST CANCER
     Dates: start: 20041007, end: 20041007
  4. GEMCITABINE [Suspect]
     Indication: BREAST CANCER
     Dates: start: 20041104, end: 20041104
  5. RAMIPRIL [Concomitant]
     Route: 048
  6. SIMVASTATIN [Concomitant]
     Route: 048
  7. DILTIAZEM HCL [Concomitant]
     Route: 048
  8. BENDROFLUAZIDE [Concomitant]
     Route: 048

REACTIONS (1)
  - MELAENA [None]
